FAERS Safety Report 6773158 (Version 26)
Quarter: 2013Q3

REPORT INFORMATION
  Report Type: Report from Study
  Country: CA (occurrence: CA)
  Receive Date: 20080926
  Receipt Date: 20130924
  Transmission Date: 20140515
  Serious: Yes (Hospitalization)
  Sender: FDA-Public Use
  Company Number: CA-ROCHE-GNE267947

PATIENT
  Age: 14 Year
  Sex: Male
  Weight: 66.07 kg

DRUGS (15)
  1. OMALIZUMAB [Suspect]
     Indication: ASTHMA
     Route: 058
     Dates: start: 20080721
  2. OMALIZUMAB [Suspect]
     Route: 065
     Dates: start: 20091019
  3. OMALIZUMAB [Suspect]
     Route: 058
     Dates: start: 20090505
  4. OMALIZUMAB [Suspect]
     Route: 058
     Dates: start: 20091130
  5. OMALIZUMAB [Suspect]
     Route: 058
     Dates: start: 20100208
  6. OMALIZUMAB [Suspect]
     Route: 058
     Dates: start: 20100308
  7. OMALIZUMAB [Suspect]
     Route: 058
     Dates: start: 20100405
  8. NOVOTRIMEL [Concomitant]
     Indication: PRODUCT USED FOR UNKNOWN INDICATION
     Dosage: UNK
     Route: 065
     Dates: end: 2008
  9. TOBRA [Concomitant]
     Indication: PRODUCT USED FOR UNKNOWN INDICATION
     Dosage: UNK
     Route: 065
     Dates: end: 2008
  10. PULMOZYME [Concomitant]
     Indication: PRODUCT USED FOR UNKNOWN INDICATION
  11. ADVAIR [Concomitant]
     Indication: PRODUCT USED FOR UNKNOWN INDICATION
     Dosage: UNK
     Route: 065
     Dates: end: 2008
  12. PREDNISONE [Concomitant]
     Indication: PRODUCT USED FOR UNKNOWN INDICATION
     Dosage: UNK
     Route: 065
  13. PREDNISONE [Concomitant]
     Route: 065
  14. SEREVENT [Concomitant]
     Indication: PRODUCT USED FOR UNKNOWN INDICATION
  15. ALVESCO [Concomitant]
     Indication: PRODUCT USED FOR UNKNOWN INDICATION

REACTIONS (23)
  - Aspergillus infection [Not Recovered/Not Resolved]
  - Respiratory tract infection [Unknown]
  - Lung infection [Unknown]
  - Pulmonary function test abnormal [Unknown]
  - Influenza [Unknown]
  - Dyspnoea [Unknown]
  - Heart rate increased [Unknown]
  - Nasal congestion [Unknown]
  - Oropharyngeal pain [Unknown]
  - Pulmonary function test abnormal [Unknown]
  - Dysphonia [Unknown]
  - Feeling cold [Unknown]
  - Nasopharyngitis [Unknown]
  - Pharyngitis [Unknown]
  - Respiratory disorder [Unknown]
  - Cough [Recovering/Resolving]
  - Increased bronchial secretion [Unknown]
  - Throat irritation [Unknown]
  - Blood pressure abnormal [Unknown]
  - Influenza like illness [Unknown]
  - Sputum discoloured [Unknown]
  - Fatigue [Unknown]
  - Sputum discoloured [Unknown]
